FAERS Safety Report 5719704-3 (Version None)
Quarter: 2008Q2

REPORT INFORMATION
  Report Type: 
  Country: None (occurrence: None)
  Receive Date: 20080423
  Receipt Date: 20070310
  Transmission Date: 20081010
  Serious: Yes (Hospitalization)
  Sender: FDA-Public Use
  Company Number: 235743

PATIENT
  Age: 51 Year
  Sex: Male
  Weight: 104.3 kg

DRUGS (1)
  1. AVASTIN [Suspect]
     Indication: COLON CANCER
     Dosage: 520 MG, INTRAVENOUS
     Route: 042

REACTIONS (1)
  - WOUND DEHISCENCE [None]
